FAERS Safety Report 23843812 (Version 1)
Quarter: 2024Q2

REPORT INFORMATION
  Report Type: Spontaneous
  Country: US (occurrence: None)
  Receive Date: 20240510
  Receipt Date: 20240510
  Transmission Date: 20240715
  Serious: Yes (Other)
  Sender: FDA-Public Use
  Company Number: None

PATIENT
  Age: 67 Year
  Sex: Female
  Weight: 55.35 kg

DRUGS (2)
  1. PROLIA [Suspect]
     Active Substance: DENOSUMAB
     Route: 058
  2. EVENITY [Suspect]
     Active Substance: ROMOSOZUMAB-AQQG

REACTIONS (5)
  - Exposed bone in jaw [None]
  - Osteonecrosis [None]
  - Mouth ulceration [None]
  - Impaired healing [None]
  - Therapy cessation [None]

NARRATIVE: CASE EVENT DATE: 20240214
